FAERS Safety Report 9249192 (Version 1)
Quarter: 2013Q2

REPORT INFORMATION
  Report Type: Spontaneous
  Country: US (occurrence: US)
  Receive Date: 20130422
  Receipt Date: 20130424
  Transmission Date: 20140414
  Serious: Yes (Hospitalization, Other)
  Sender: FDA-Public Use
  Company Number: US-RB-052810-13

PATIENT
  Age: 15 Year
  Sex: Male

DRUGS (4)
  1. MUCINEX FAST MAX ADULT DM [Suspect]
     Indication: PRODUCT USED FOR UNKNOWN INDICATION
     Dosage: STOPPED USE ON 06-APR-2013.
     Route: 048
     Dates: start: 20130404
  2. DELSYM ORANGE FLAVOR [Suspect]
     Indication: PRODUCT USED FOR UNKNOWN INDICATION
     Dosage: TOOK IN ONCE ON ??-APR-2013
     Route: 048
  3. GUAIFENESIN [Concomitant]
     Indication: PRODUCT USED FOR UNKNOWN INDICATION
  4. NYQUIL [Concomitant]
     Indication: PYREXIA
     Dosage: TAKING EVERY 6 TO 8 HOURS

REACTIONS (10)
  - Overdose [Unknown]
  - Pharyngeal oedema [Unknown]
  - Choking [Unknown]
  - Dysphagia [Not Recovered/Not Resolved]
  - Cough [Unknown]
  - Tension [Unknown]
  - Poor quality sleep [Unknown]
  - Unevaluable event [Unknown]
  - Asthenia [Unknown]
  - Eating disorder [Unknown]
